FAERS Safety Report 23214035 (Version 1)
Quarter: 2023Q4

REPORT INFORMATION
  Report Type: Spontaneous
  Country: US (occurrence: US)
  Receive Date: 20231121
  Receipt Date: 20231121
  Transmission Date: 20240110
  Serious: No
  Sender: FDA-Public Use
  Company Number: US-BEH-2023165497

PATIENT
  Age: 66 Year
  Sex: Female

DRUGS (9)
  1. HIZENTRA [Suspect]
     Active Substance: HUMAN IMMUNOGLOBULIN G
     Indication: Osteoarthritis
     Dosage: 8 GRAM, QW
     Route: 058
  2. ALLOPURINOL [Concomitant]
     Active Substance: ALLOPURINOL
  3. COLCHICINE [Concomitant]
     Active Substance: COLCHICINE
  4. LEVOTHYROXINE [Concomitant]
     Active Substance: LEVOTHYROXINE
  5. LYRICA [Concomitant]
     Active Substance: PREGABALIN
  6. MELOXICAM [Concomitant]
     Active Substance: MELOXICAM
  7. MORPHINE SULFATE [Concomitant]
     Active Substance: MORPHINE SULFATE
  8. ACETAMINOPHEN\OXYCODONE HYDROCHLORIDE [Concomitant]
     Active Substance: ACETAMINOPHEN\OXYCODONE HYDROCHLORIDE
  9. SULFAMETHOXAZOLE [Concomitant]
     Active Substance: SULFAMETHOXAZOLE

REACTIONS (3)
  - Fall [Unknown]
  - No adverse event [Unknown]
  - Off label use [Unknown]

NARRATIVE: CASE EVENT DATE: 20231001
